FAERS Safety Report 5092232-7 (Version None)
Quarter: 2006Q3

REPORT INFORMATION
  Report Type: 
  Country: None (occurrence: None)
  Receive Date: 20060824
  Receipt Date: 20060814
  Transmission Date: 20061208
  Serious: Yes (Death, Hospitalization)
  Sender: FDA-Public Use
  Company Number: 207675

PATIENT
  Age: 52 Year
  Sex: Male
  Weight: 68.0396 kg

DRUGS (11)
  1. AVONEX [Suspect]
     Indication: MULTIPLE SCLEROSIS
     Dosage: 30 UG, QW, IM
     Route: 030
     Dates: start: 19970801, end: 20040201
  2. AVONEX [Suspect]
     Indication: MULTIPLE SCLEROSIS
     Dosage: 30 UG; QW; IM
     Route: 030
     Dates: start: 20040201, end: 20040101
  3. AVONEX [Suspect]
     Indication: MULTIPLE SCLEROSIS
     Dosage: 30 UG; QW; IM
     Route: 030
     Dates: start: 20040701
  4. LORATADINE [Concomitant]
  5. TEGRETOL [Concomitant]
  6. SIMVASTATIN [Concomitant]
  7. SUPPOSITORY (NOS) [Concomitant]
  8. CONSTIPATION [Concomitant]
  9. MECLIZINE [Concomitant]
  10. CHLORZOXAZONE [Concomitant]
  11. MVI (NOS) [Concomitant]

REACTIONS (2)
  - LUNG CANCER METASTATIC [None]
  - WEIGHT DECREASED [None]
